FAERS Safety Report 4478314-9 (Version None)
Quarter: 2004Q4

REPORT INFORMATION
  Report Type: 
  Country: None (occurrence: None)
  Receive Date: 20041019
  Receipt Date: 20040408
  Transmission Date: 20050328
  Serious: Yes (Death)
  Sender: FDA-Public Use
  Company Number: 200412815US

PATIENT
  Sex: Male

DRUGS (1)
  1. TAXOTERE [Suspect]
     Indication: CARCINOMA
     Dosage: DOSE: UNK

REACTIONS (2)
  - ANAPHYLACTIC REACTION [None]
  - FLUID RETENTION [None]
